FAERS Safety Report 5771486-5 (Version None)
Quarter: 2008Q2

REPORT INFORMATION
  Report Type: 
  Country: None (occurrence: None)
  Receive Date: 20080612
  Receipt Date: 20080612
  Transmission Date: 20081010
  Serious: No
  Sender: FDA-Public Use
  Company Number: None

PATIENT
  Age: 37 Year
  Sex: Female
  Weight: 92.5338 kg

DRUGS (2)
  1. DEMEROL [Suspect]
     Indication: PAIN
     Dates: start: 20071229, end: 20071229
  2. PHENERGAN [Suspect]

REACTIONS (11)
  - ABNORMAL BEHAVIOUR [None]
  - AMNESIA [None]
  - CONFUSIONAL STATE [None]
  - CONVULSION [None]
  - DYSARTHRIA [None]
  - GALLBLADDER OPERATION [None]
  - GRAND MAL CONVULSION [None]
  - HEAD INJURY [None]
  - IMPAIRED DRIVING ABILITY [None]
  - IMPAIRED WORK ABILITY [None]
  - TONGUE BITING [None]
